FAERS Safety Report 7170189-2 (Version None)
Quarter: 2010Q4

REPORT INFORMATION
  Report Type: 
  Country: None (occurrence: None)
  Receive Date: 20101217
  Receipt Date: 20101209
  Transmission Date: 20110411
  Serious: Yes (Life-Threatening, Hospitalization)
  Sender: FDA-Public Use
  Company Number: FR-MPIJNJ-2010-06159

PATIENT

DRUGS (6)
  1. VELCADE [Suspect]
     Indication: MULTIPLE MYELOMA
     Dosage: 1.3 MG/M2, CYCLIC
     Route: 042
     Dates: start: 20081106, end: 20090205
  2. VELCADE [Suspect]
     Dosage: 1.3 MG/M2, CYCLIC
     Route: 042
     Dates: start: 20101118, end: 20101124
  3. ZOLEDRONIC ACID [Concomitant]
     Dosage: UNK
     Dates: start: 20081030
  4. INEXIUM                            /01479302/ [Concomitant]
     Dosage: UNK
     Dates: start: 20081105, end: 20100320
  5. MORPHINE [Concomitant]
     Dosage: UNK
     Dates: start: 20081127
  6. DEXAMETHASONE [Concomitant]
     Indication: MULTIPLE MYELOMA
     Dosage: 40 MG, UNK
     Route: 048
     Dates: start: 20101118

REACTIONS (3)
  - HYPERCALCAEMIA [None]
  - RENAL FAILURE ACUTE [None]
  - THROMBOCYTOPENIA [None]
